FAERS Safety Report 9957098 (Version 1)
Quarter: 2014Q1

REPORT INFORMATION
  Report Type: Report from Study
  Country: US (occurrence: US)
  Receive Date: 20140304
  Receipt Date: 20140304
  Transmission Date: 20141002
  Serious: No
  Sender: FDA-Public Use
  Company Number: US-ABBVIE-13P-163-1096508-00

PATIENT
  Age: 54 Year
  Sex: Female
  Weight: 138.47 kg

DRUGS (12)
  1. HUMIRA (ABBOTT) [Suspect]
     Indication: PSORIATIC ARTHROPATHY
     Route: 058
     Dates: start: 20130130
  2. HUMIRA (ABBOTT) [Suspect]
     Indication: PSORIASIS
  3. ARMOR THYROID [Concomitant]
     Indication: HYPOTHYROIDISM
  4. CYMBALTA [Concomitant]
     Indication: ARTHRALGIA
  5. UNKNOWN MEDICATION [Concomitant]
     Indication: HYPERTENSION
  6. BISTOLIC [Concomitant]
     Indication: HYPERTENSION
  7. METFORMIN [Concomitant]
     Indication: POLYCYSTIC OVARIES
  8. VYTORIN [Concomitant]
     Indication: BLOOD CHOLESTEROL INCREASED
  9. VYTORIN [Concomitant]
     Indication: BLOOD TRIGLYCERIDES INCREASED
  10. ULTRAM [Concomitant]
     Indication: ARTHRALGIA
  11. TACLONEX SCALP [Concomitant]
     Indication: PSORIASIS
     Dosage: LIQUID
  12. UNKNOWN MEDICATION [Concomitant]
     Indication: PSORIASIS

REACTIONS (4)
  - Oropharyngeal pain [Recovering/Resolving]
  - Ear pain [Recovered/Resolved]
  - Pyrexia [Recovered/Resolved]
  - Lymphadenopathy [Unknown]
